FAERS Safety Report 10345551 (Version 2)
Quarter: 2018Q2

REPORT INFORMATION
  Report Type: Spontaneous
  Country: US (occurrence: US)
  Receive Date: 20140728
  Receipt Date: 20180417
  Transmission Date: 20180711
  Serious: Yes (Other)
  Sender: FDA-Public Use
  Company Number: US-PFIZER INC-2014209423

PATIENT
  Age: 51 Year
  Sex: Female
  Weight: 79 kg

DRUGS (8)
  1. FIORICET WITH CODEINE [Concomitant]
     Active Substance: ACETAMINOPHEN\BUTALBITAL\CAFFEINE\CODEINE PHOSPHATE
     Dosage: 5 DF, DAILY
  2. XANAX [Concomitant]
     Active Substance: ALPRAZOLAM
     Dosage: UNK
  3. HYOSCYAMINE. [Concomitant]
     Active Substance: HYOSCYAMINE
     Dosage: UNK
  4. TIZANIDINE. [Concomitant]
     Active Substance: TIZANIDINE
     Dosage: UNK
  5. AMBIEN [Concomitant]
     Active Substance: ZOLPIDEM TARTRATE
     Indication: INSOMNIA
     Dosage: UNK
  6. LYRICA [Suspect]
     Active Substance: PREGABALIN
     Indication: FIBROMYALGIA
     Dosage: 150 MG, 2X/DAY
     Route: 048
     Dates: start: 200512, end: 201803
  7. LYRICA [Suspect]
     Active Substance: PREGABALIN
     Indication: MIGRAINE
  8. FIORICET [Concomitant]
     Active Substance: ACETAMINOPHEN\BUTALBITAL\CAFFEINE
     Dosage: 5 DF, DAILY
     Dates: start: 1986

REACTIONS (10)
  - Fall [Unknown]
  - Upper limb fracture [Unknown]
  - Accident [Unknown]
  - Hand fracture [Unknown]
  - Lower limb fracture [Unknown]
  - Intervertebral disc injury [Unknown]
  - Hypertension [Recovered/Resolved]
  - Weight increased [Unknown]
  - Wrist fracture [Unknown]
  - Blood cholesterol increased [Unknown]

NARRATIVE: CASE EVENT DATE: 200907
